FAERS Safety Report 13075682 (Version 1)
Quarter: 2016Q4

REPORT INFORMATION
  Report Type: Spontaneous
  Country: FR (occurrence: FR)
  Receive Date: 20161230
  Receipt Date: 20161230
  Transmission Date: 20170207
  Serious: Yes (Hospitalization)
  Sender: FDA-Public Use
  Company Number: FR-JNJFOC-20161210265

PATIENT
  Age: 67 Year
  Sex: Female

DRUGS (3)
  1. VALPROMIDE [Concomitant]
     Active Substance: VALPROMIDE
     Route: 048
  2. DUROGESIC [Suspect]
     Active Substance: FENTANYL
     Indication: PAIN
     Route: 062
     Dates: start: 201612, end: 20161204
  3. LEVOTHYROXINE. [Concomitant]
     Active Substance: LEVOTHYROXINE
     Dosage: 100 MCG 125 MG/DAY
     Route: 048

REACTIONS (5)
  - Somnolence [Recovered/Resolved]
  - Hyperthermia [Unknown]
  - Lung disorder [Unknown]
  - Overdose [Unknown]
  - Inappropriate schedule of drug administration [Unknown]

NARRATIVE: CASE EVENT DATE: 201612
